FAERS Safety Report 20643311 (Version 1)
Quarter: 2022Q1

REPORT INFORMATION
  Report Type: Spontaneous
  Country: US (occurrence: None)
  Receive Date: 20220325
  Receipt Date: 20220325
  Transmission Date: 20220424
  Serious: Yes (Hospitalization)
  Sender: FDA-Public Use
  Company Number: None

PATIENT
  Age: 77 Year
  Sex: Female
  Weight: 76 kg

DRUGS (1)
  1. VISTOGARD [Suspect]
     Active Substance: URIDINE TRIACETATE
     Indication: Toxicity to various agents
     Dosage: OTHER FREQUENCY : EVERY 6 HOURS;?OTHER ROUTE : FEEDING TUBE;?
     Route: 050
     Dates: start: 20220318, end: 20220319

REACTIONS (7)
  - Vomiting [None]
  - Hypotension [None]
  - Lethargy [None]
  - Bradycardia [None]
  - Cardiac arrest [None]
  - Device occlusion [None]
  - Product dose omission issue [None]

NARRATIVE: CASE EVENT DATE: 20220319
